FAERS Safety Report 4678715-X (Version None)
Quarter: 2005Q2

REPORT INFORMATION
  Report Type: 
  Country: None (occurrence: None)
  Receive Date: 20050531
  Receipt Date: 20050519
  Transmission Date: 20051028
  Serious: Yes (Other)
  Sender: FDA-Public Use
  Company Number: 2005079175

PATIENT
  Sex: Male

DRUGS (1)
  1. LAVACOL (ETHYL ALCOHOL) [Suspect]
     Indication: INTENTIONAL MISUSE
     Dosage: 1/3 OF A BOTTLE, ONCE, ORAL
     Route: 048
     Dates: start: 20050519, end: 20050519

REACTIONS (2)
  - INTENTIONAL MISUSE [None]
  - VOMITING [None]
